FAERS Safety Report 21624173 (Version 1)
Quarter: 2022Q4

REPORT INFORMATION
  Report Type: Other
  Country: GB (occurrence: GB)
  Receive Date: 20221121
  Receipt Date: 20221121
  Transmission Date: 20230112
  Serious: Yes (Other)
  Sender: FDA-Public Use
  Company Number: None

PATIENT
  Age: 68 Year
  Sex: Female

DRUGS (6)
  1. ADREVIEW [Suspect]
     Active Substance: IOBENGUANE I-123
     Indication: Computerised tomogram abdomen
     Dosage: UNK UNK, SINGLE
     Route: 042
     Dates: start: 20221029, end: 20221029
  2. ADREVIEW [Suspect]
     Active Substance: IOBENGUANE I-123
     Indication: Product used for unknown indication
  3. SODIUM IODIDE I-123 [Suspect]
     Active Substance: SODIUM IODIDE I-123
     Indication: Computerised tomogram abdomen
     Dosage: UNK UNK, SINGLE
     Route: 042
     Dates: start: 20221029, end: 20221029
  4. SODIUM IODIDE I-123 [Suspect]
     Active Substance: SODIUM IODIDE I-123
     Indication: Product used for unknown indication
  5. SARS-CoV-2 vaccine [Concomitant]
     Dosage: UNK
  6. INFLUENZA VIRUS VACCINE [Concomitant]
     Active Substance: INFLUENZA VIRUS VACCINE
     Dosage: UNK

REACTIONS (1)
  - Urticaria [Recovering/Resolving]

NARRATIVE: CASE EVENT DATE: 20221104
